FAERS Safety Report 15696252 (Version 2)
Quarter: 2019Q2

REPORT INFORMATION
  Report Type: Spontaneous
  Country: IT (occurrence: IT)
  Receive Date: 20181206
  Receipt Date: 20190619
  Transmission Date: 20190711
  Serious: Yes (Other)
  Sender: FDA-Public Use
  Company Number: IT-PFIZER INC-2018503276

PATIENT
  Age: 69 Year
  Sex: Female
  Weight: 56 kg

DRUGS (5)
  1. HERCEPTIN [Suspect]
     Active Substance: TRASTUZUMAB
     Indication: ADENOCARCINOMA GASTRIC
     Dosage: 224 MG, CYCLIC
     Route: 042
     Dates: start: 20180226, end: 20181001
  2. FLUOROURACIL. [Suspect]
     Active Substance: FLUOROURACIL
     Indication: ADENOCARCINOMA GASTRIC
     Dosage: 3768 MG, CYCLIC
     Route: 042
     Dates: start: 20180226, end: 20181001
  3. FLUOROURACIL. [Suspect]
     Active Substance: FLUOROURACIL
     Dosage: 628 MG, CYCLIC
     Route: 040
     Dates: start: 20180226, end: 20181001
  4. LEVOLEUCOVORIN. [Concomitant]
     Active Substance: LEVOLEUCOVORIN
     Indication: ADENOCARCINOMA GASTRIC
     Dosage: 314 MG, UNK
     Route: 042
     Dates: start: 20180226, end: 20181001
  5. OXALIPLATIN. [Suspect]
     Active Substance: OXALIPLATIN
     Indication: ADENOCARCINOMA GASTRIC
     Dosage: 130 MG, CYCLIC
     Route: 042
     Dates: start: 20180226, end: 20180827

REACTIONS (2)
  - Extrasystoles [Recovering/Resolving]
  - Arrhythmia [Recovering/Resolving]

NARRATIVE: CASE EVENT DATE: 20180326
